FAERS Safety Report 17131241 (Version 1)
Quarter: 2019Q4

REPORT INFORMATION
  Report Type: Other
  Country: FR (occurrence: FR)
  Receive Date: 20191209
  Receipt Date: 20191209
  Transmission Date: 20200122
  Serious: Yes (Hospitalization)
  Sender: FDA-Public Use
  Company Number: FR-CELLTRION INC.-2019FR027023

PATIENT

DRUGS (3)
  1. WELLVONE [Suspect]
     Active Substance: ATOVAQUONE
     Indication: PNEUMOCYSTIS JIROVECII PNEUMONIA
     Dosage: 2 DF, QD
     Route: 048
     Dates: start: 20190920, end: 20191028
  2. CANCIDAS [Concomitant]
     Active Substance: CASPOFUNGIN ACETATE
     Indication: CANDIDA INFECTION
     Dosage: UNK
     Dates: start: 20191002, end: 20191015
  3. TRUXIMA [Suspect]
     Active Substance: RITUXIMAB-ABBS
     Indication: LUNG DISORDER
     Dosage: 1 G, 15 DAY
     Route: 041
     Dates: start: 20191018, end: 20191018

REACTIONS (3)
  - Toxic skin eruption [Recovering/Resolving]
  - Eosinophilia [Recovering/Resolving]
  - Product use in unapproved indication [Unknown]

NARRATIVE: CASE EVENT DATE: 20190930
